FAERS Safety Report 8878475 (Version 2)
Quarter: 2012Q4

REPORT INFORMATION
  Report Type: 
  Country: BE (occurrence: BE)
  Receive Date: 20121030
  Receipt Date: 20121113
  Transmission Date: 20130627
  Serious: Yes (Other)
  Sender: FDA-Public Use
  Company Number: BE-JNJFOC-20121016032

PATIENT
  Sex: Female
  Weight: 11 kg

DRUGS (3)
  1. PERDOPHEN [Suspect]
     Route: 048
  2. PERDOPHEN [Suspect]
     Indication: VARICELLA
     Route: 048
     Dates: start: 201204, end: 201204
  3. PERDOLAN BABY [Concomitant]
     Route: 054

REACTIONS (1)
  - Skin bacterial infection [Recovered/Resolved]
